FAERS Safety Report 5933482-4 (Version None)
Quarter: 2008Q4

REPORT INFORMATION
  Report Type: 
  Country: None (occurrence: None)
  Receive Date: 20081024
  Receipt Date: 20081013
  Transmission Date: 20090506
  Serious: Yes (Hospitalization)
  Sender: FDA-Public Use
  Company Number: 230627K08USA

PATIENT
  Age: 46 Year
  Sex: Female

DRUGS (2)
  1. REBIF [Suspect]
     Indication: MULTIPLE SCLEROSIS
     Dosage: 44 MCG, 3 IN 1 WEEKS, SUBCUTANEOUS
     Route: 058
     Dates: start: 20080423, end: 20080101
  2. UNSPECIFIED THYROID MEDICATION (THYROID THERAPY) [Suspect]
     Indication: MULTIPLE SCLEROSIS

REACTIONS (1)
  - CYSTITIS [None]
